FAERS Safety Report 6623480-X (Version None)
Quarter: 2010Q1

REPORT INFORMATION
  Report Type: 
  Country: None (occurrence: None)
  Receive Date: 20100304
  Receipt Date: 20100216
  Transmission Date: 20100710
  Serious: Yes (Death)
  Sender: FDA-Public Use
  Company Number: 2010BI001953

PATIENT
  Age: 67 Year
  Sex: Female

DRUGS (5)
  1. ZEVALIN [Suspect]
     Indication: NON-HODGKIN'S LYMPHOMA
  2. RITUXIMAB [Concomitant]
  3. CYCLOSPORINE [Concomitant]
  4. FLUDARABINE PHOSPHATE [Concomitant]
  5. PREV MEDS [Concomitant]

REACTIONS (2)
  - DISEASE PROGRESSION [None]
  - NON-HODGKIN'S LYMPHOMA [None]
